FAERS Safety Report 20379136 (Version 1)
Quarter: 2022Q1

REPORT INFORMATION
  Report Type: Spontaneous
  Country: US (occurrence: US)
  Receive Date: 20220126
  Receipt Date: 20220126
  Transmission Date: 20220423
  Serious: Yes (Other)
  Sender: FDA-Public Use
  Company Number: US-009507513-2201USA006888

PATIENT
  Age: 74 Year
  Sex: Male

DRUGS (3)
  1. KEYTRUDA [Suspect]
     Active Substance: PEMBROLIZUMAB
     Indication: Thyroid cancer metastatic
  2. BINIMETINIB [Suspect]
     Active Substance: BINIMETINIB
     Indication: Thyroid cancer metastatic
     Dosage: UNK
  3. ENCORAFENIB [Suspect]
     Active Substance: ENCORAFENIB
     Indication: Thyroid cancer metastatic

REACTIONS (2)
  - Pemphigoid [Unknown]
  - Off label use [Unknown]
